FAERS Safety Report 8941430 (Version 8)
Quarter: 2013Q3

REPORT INFORMATION
  Report Type: Report from Study
  Country: GB (occurrence: GB)
  Receive Date: 20121203
  Receipt Date: 20130827
  Transmission Date: 20140515
  Serious: Yes (Hospitalization)
  Sender: FDA-Public Use
  Company Number: GB-ROCHE-1159468

PATIENT
  Age: 51 Year
  Sex: Female
  Weight: 61 kg

DRUGS (26)
  1. TRASTUZUMAB [Suspect]
     Indication: BREAST CANCER
     Dosage: LAST DOSE PRIOR TO SAE-21/DEC/2012,
     Route: 042
     Dates: start: 20121019
  2. TRASTUZUMAB [Suspect]
     Dosage: LAST DOSE PRIOR TO SAE ON 21/DEC/2012, MAINTENANCE DOSE?DATE OF LAST DOSE PRIOR TO FEVER: 15/MAR/201
     Route: 042
     Dates: start: 20121109
  3. DOCETAXEL [Suspect]
     Indication: BREAST CANCER
     Dosage: LAST DOSE PRIOR TO SAE-19/OCT/2012
     Route: 042
     Dates: start: 20121019, end: 20121109
  4. DOCETAXEL [Suspect]
     Route: 042
     Dates: start: 20121109, end: 20121129
  5. FLUOROURACIL [Suspect]
     Indication: BREAST CANCER
     Dosage: DATE OF LAST DOSE PRIOR TO SAE (VIRAL INFECTION 1ST EPISODE): 06/SEP/2012?DATE OF LAST DOSE PRIOR TO
     Route: 042
     Dates: start: 20120816
  6. EPIRUBICIN [Suspect]
     Indication: BREAST CANCER
     Dosage: DATE OF LAST DOSE PRIOR TO SAE (VIRAL INFECTION 1ST EPISODE): 06/SEP/2012?DATE OF LAST DOSE PRIOR TO
     Route: 042
     Dates: start: 20120816
  7. CYCLOPHOSPHAMIDE [Suspect]
     Indication: BREAST CANCER
     Dosage: DATE OF LAST DOSE PRIOR TO SAE (VIRAL INFECTION 1ST EPISODE): 06/SEP/2012?DATE OF LAST DOSE PRIOR TO
     Route: 042
     Dates: start: 20120816
  8. PARACETAMOL [Concomitant]
     Route: 065
  9. PARACETAMOL [Concomitant]
     Route: 065
     Dates: start: 20120919
  10. PIRITON [Concomitant]
     Route: 065
     Dates: start: 20121221
  11. PIRITON [Concomitant]
     Route: 065
     Dates: start: 20130325
  12. CIPROFLOXACIN [Concomitant]
     Route: 065
  13. NYSTATIN [Concomitant]
     Route: 065
     Dates: start: 201210, end: 20121102
  14. PIRITON [Concomitant]
     Route: 065
     Dates: start: 20121221
  15. PIRITON [Concomitant]
     Route: 065
     Dates: start: 20130325
  16. OMEPRAZOLE [Concomitant]
     Route: 065
     Dates: start: 20120927
  17. TRAMADOL [Concomitant]
  18. MACROGOL [Concomitant]
     Route: 065
     Dates: start: 20121025
  19. FORTISIP [Concomitant]
     Route: 065
     Dates: start: 20121025
  20. CORSODYL MOUTHWASH [Concomitant]
     Route: 065
     Dates: start: 20121025
  21. ZOPICLONE [Concomitant]
  22. LOPERAMIDE [Concomitant]
  23. LANSOPRAZOLE [Concomitant]
     Route: 065
     Dates: start: 20130325
  24. FILGRASTIM [Concomitant]
     Route: 065
     Dates: start: 20121025, end: 201210
  25. PERTUZUMAB [Suspect]
     Indication: BREAST CANCER
     Dosage: LAST DOSE PRIOR EVENT FEVER ON 15/MAR/2013
     Route: 042
     Dates: start: 20121019
  26. PERTUZUMAB [Suspect]
     Dosage: LAST DOSE PRIOR TO SAE-21/DEC/2012?DATE OF LAST DOSE PRIOR TO FEVER: 15/MAR/2013
     Route: 042
     Dates: start: 20121109

REACTIONS (4)
  - Neutropenic sepsis [Recovered/Resolved]
  - Viral infection [Recovered/Resolved]
  - Pyrexia [Recovered/Resolved]
  - Viral infection [Recovered/Resolved]
